FAERS Safety Report 9977572 (Version 2)
Quarter: 2014Q1

REPORT INFORMATION
  Report Type: Report from Study
  Country: US (occurrence: US)
  Receive Date: 20140306
  Receipt Date: 20140306
  Transmission Date: 20141002
  Serious: No
  Sender: FDA-Public Use
  Company Number: US-ABBVIE-13P-163-1141917-00

PATIENT
  Age: 29 Year
  Sex: Female

DRUGS (6)
  1. HUMIRA [Suspect]
     Indication: ANKYLOSING SPONDYLITIS
     Dosage: 40MG INITIAL DOSE
     Route: 058
     Dates: start: 20130826
  2. PRILOSEC [Concomitant]
     Indication: GASTROOESOPHAGEAL REFLUX DISEASE
  3. MULTIVITAMINS WITH IRON [Concomitant]
     Indication: PRODUCT USED FOR UNKNOWN INDICATION
  4. VIT D [Concomitant]
     Indication: PRODUCT USED FOR UNKNOWN INDICATION
  5. CYPROHEPTADINE [Concomitant]
     Indication: HYPERSENSITIVITY
  6. LAMICTAL [Concomitant]
     Indication: ARTHRALGIA

REACTIONS (5)
  - Injection site erythema [Recovering/Resolving]
  - Influenza like illness [Unknown]
  - Injection site papule [Recovering/Resolving]
  - Rubber sensitivity [Unknown]
  - Food allergy [Recovered/Resolved]
